FAERS Safety Report 6136096-9 (Version None)
Quarter: 2009Q1

REPORT INFORMATION
  Report Type: 
  Country: None (occurrence: None)
  Receive Date: 20090330
  Receipt Date: 20090319
  Transmission Date: 20090719
  Serious: Yes (Other)
  Sender: FDA-Public Use
  Company Number: US-AMGEN-QUU339425

PATIENT
  Sex: Female

DRUGS (2)
  1. ENBREL [Suspect]
     Indication: RHEUMATOID ARTHRITIS
     Route: 058
     Dates: end: 20090101
  2. ENBREL [Suspect]
     Indication: PSORIASIS

REACTIONS (7)
  - CARDIAC MURMUR [None]
  - COUGH [None]
  - DYSPHAGIA [None]
  - MACULAR DEGENERATION [None]
  - NAIL DISORDER [None]
  - PSORIASIS [None]
  - VISUAL ACUITY REDUCED [None]
